FAERS Safety Report 7396023-3 (Version None)
Quarter: 2011Q1

REPORT INFORMATION
  Report Type: 
  Country: None (occurrence: None)
  Receive Date: 20110325
  Receipt Date: 20110314
  Transmission Date: 20110831
  Serious: Yes (Hospitalization)
  Sender: FDA-Public Use
  Company Number: 2011MA002396

PATIENT
  Age: 34 Year
  Sex: Female

DRUGS (3)
  1. FEVERALL [Suspect]
     Dosage: 25000 MG;1X;PO
     Route: 048
  2. LORATADINE [Concomitant]
  3. FLUOXETINE [Concomitant]

REACTIONS (10)
  - TORSADE DE POINTES [None]
  - HYPOMAGNESAEMIA [None]
  - CARDIAC ARREST [None]
  - OVERDOSE [None]
  - VENTRICULAR FIBRILLATION [None]
  - ELECTROCARDIOGRAM QT PROLONGED [None]
  - HYPOKALAEMIA [None]
  - ALCOHOL WITHDRAWAL SYNDROME [None]
  - ANAPHYLACTIC REACTION [None]
  - ALANINE AMINOTRANSFERASE INCREASED [None]
